FAERS Safety Report 7602788-5 (Version None)
Quarter: 2011Q3

REPORT INFORMATION
  Report Type: 
  Country: None (occurrence: None)
  Receive Date: 20110701
  Receipt Date: 20110621
  Transmission Date: 20111222
  Serious: Yes (Other)
  Sender: FDA-Public Use
  Company Number: FK201101228

PATIENT
  Age: 72 Year
  Sex: Female

DRUGS (1)
  1. BACITRACIN FOR INJECTION USP (BACITRACIN) (BACITRACIN) [Suspect]
     Indication: WOUND TREATMENT
     Dosage: 1560000 UL, UNDEFINED AMOUNT; SOAKED GAUZE, OTHER
     Route: 050

REACTIONS (1)
  - ANAPHYLACTIC REACTION [None]
